FAERS Safety Report 7471611-4 (Version None)
Quarter: 2011Q2

REPORT INFORMATION
  Report Type: 
  Country: None (occurrence: None)
  Receive Date: 20110511
  Receipt Date: 20110331
  Transmission Date: 20111010
  Serious: Yes (Other)
  Sender: FDA-Public Use
  Company Number: US-BAYER-201016531NA

PATIENT
  Sex: Female
  Weight: 52 kg

DRUGS (8)
  1. WELLBUTRIN XL [Concomitant]
     Dosage: 150 MG, UNK
  2. YASMIN [Suspect]
     Indication: CONTRACEPTION
     Dosage: UNK
     Route: 048
     Dates: start: 20020101, end: 20080101
  3. CLONAZEPAM [Concomitant]
  4. MAXALT [Concomitant]
     Dosage: 10 MG, UNK
  5. FLUOXETINE [Concomitant]
  6. TRAZODONE HCL [Concomitant]
     Dosage: 50 MG, UNK
  7. DICYCLOMINE [Concomitant]
  8. BUDEPRION [Concomitant]
     Dosage: 150 MG, UNK

REACTIONS (3)
  - GALLBLADDER DISORDER [None]
  - CHOLELITHIASIS [None]
  - CHOLECYSTITIS CHRONIC [None]
